FAERS Safety Report 9293873 (Version 1)
Quarter: 2013Q1

REPORT INFORMATION
  Report Type: Spontaneous
  Country: US (occurrence: None)
  Receive Date: 20121217
  Receipt Date: 20121217
  Transmission Date: 20140127
  Serious: Yes (Hospitalization)
  Sender: FDA-Public Use
  Company Number: 1000039260

PATIENT
  Age: 93 Year
  Sex: Female

DRUGS (7)
  1. NAMENDA [Suspect]
     Route: 048
     Dates: start: 201207
  2. LORAZEPAM (LORAZEPAM) (LORAZEPAM) [Concomitant]
  3. AMLODIPINE (AMLODIPINE) (AMLODIPINE) [Concomitant]
  4. MELOXICAM (MELOXICAM) (MELOXICAM) [Concomitant]
  5. DIOVAN (VALSARTAN) (VALSARTAN) [Concomitant]
  6. GLYBURIDE (GLIBENCLAMIDE) (GLIBENCLAMIDE) [Concomitant]
  7. MELATONIN (MELATONIN) (MELATONIN) [Concomitant]

REACTIONS (5)
  - Fall [None]
  - Hallucination [None]
  - Amnesia [None]
  - Confusional state [None]
  - Urinary tract infection [None]
